FAERS Safety Report 18175640 (Version 1)
Quarter: 2020Q3

REPORT INFORMATION
  Report Type: Spontaneous
  Country: US (occurrence: US)
  Receive Date: 20200820
  Receipt Date: 20200820
  Transmission Date: 20201103
  Serious: No
  Sender: FDA-Public Use
  Company Number: US-SA-2020SA219188

PATIENT

DRUGS (4)
  1. FLUOXETINE HCL [Concomitant]
     Active Substance: FLUOXETINE HYDROCHLORIDE
  2. DUPIXENT [Suspect]
     Active Substance: DUPILUMAB
     Indication: DERMATITIS
     Dosage: 300 MG, QOW
     Route: 058
     Dates: start: 202008
  3. TRI?SPRINTEC [Concomitant]
     Active Substance: ETHINYL ESTRADIOL\NORGESTIMATE
     Dosage: 7DAYSX3
  4. TRAZODONE HYDROCHLORIDE. [Concomitant]
     Active Substance: TRAZODONE HYDROCHLORIDE

REACTIONS (10)
  - Pruritus [Unknown]
  - Sleep disorder [Unknown]
  - Nausea [Unknown]
  - Eczema [Unknown]
  - Skin exfoliation [Unknown]
  - Skin warm [Unknown]
  - Skin haemorrhage [Unknown]
  - Erythema [Unknown]
  - Dry skin [Unknown]
  - Dizziness [Unknown]

NARRATIVE: CASE EVENT DATE: 202008
